FAERS Safety Report 5596697-3 (Version None)
Quarter: 2008Q1

REPORT INFORMATION
  Report Type: 
  Country: None (occurrence: None)
  Receive Date: 20080118
  Receipt Date: 20080108
  Transmission Date: 20080703
  Serious: Yes (Disabling, Other)
  Sender: FDA-Public Use
  Company Number: US-PFIZER INC-2008003120

PATIENT

DRUGS (1)
  1. LYRICA [Suspect]

REACTIONS (1)
  - MENTAL DISORDER [None]
